FAERS Safety Report 9155397 (Version 1)
Quarter: 2013Q1

REPORT INFORMATION
  Report Type: Spontaneous
  Country: US (occurrence: US)
  Receive Date: 20130311
  Receipt Date: 20130311
  Transmission Date: 20140127
  Serious: Yes (Hospitalization, Other)
  Sender: FDA-Public Use
  Company Number: US-ABBOTT-13P-163-1057531-00

PATIENT
  Sex: Female
  Weight: 1.54 kg

DRUGS (1)
  1. LEVOTHYROXINE [Suspect]
     Indication: MATERNAL EXPOSURE TIMING UNSPECIFIED
     Route: 064

REACTIONS (18)
  - Tachycardia foetal [Recovered/Resolved]
  - Foetal heart rate deceleration [Recovered/Resolved]
  - Foetal hypokinesia [Recovered/Resolved]
  - Premature baby [Recovered/Resolved]
  - Pulmonary hypertension [Unknown]
  - Goitre [Recovered/Resolved]
  - Staring [Recovered/Resolved]
  - Tachycardia [Recovered/Resolved]
  - Blood pressure increased [Recovered/Resolved]
  - Weight gain poor [Recovered/Resolved]
  - Neonatal thyrotoxicosis [Recovered/Resolved]
  - Hyperthyroidism [Recovered/Resolved]
  - Irritability [Recovered/Resolved]
  - Thyroid stimulating immunoglobulin increased [Recovered/Resolved]
  - Blood thyroid stimulating hormone decreased [Not Recovered/Not Resolved]
  - Foetal growth restriction [Recovering/Resolving]
  - Hypothyroidism [Recovered/Resolved]
  - Foetal exposure during pregnancy [Unknown]
